FAERS Safety Report 8922724 (Version 2)
Quarter: 2014Q3

REPORT INFORMATION
  Report Type: Report from Study
  Country: US (occurrence: US)
  Receive Date: 20121123
  Receipt Date: 20140911
  Transmission Date: 20150326
  Serious: Yes (Hospitalization)
  Sender: FDA-Public Use
  Company Number: US-ROCHE-1158376

PATIENT
  Age: 60 Year
  Sex: Female

DRUGS (6)
  1. CYTOXAN [Concomitant]
     Active Substance: CYCLOPHOSPHAMIDE
     Dosage: Q 12 HRS X 6 DOSES
     Route: 042
     Dates: start: 20100818, end: 20100821
  2. ADRIAMYCIN [Concomitant]
     Active Substance: DOXORUBICIN HYDROCHLORIDE
     Route: 065
     Dates: start: 20100818
  3. DEXAMETHASONE. [Concomitant]
     Active Substance: DEXAMETHASONE
     Route: 065
     Dates: start: 20100818
  4. MESNA. [Concomitant]
     Active Substance: MESNA
     Route: 042
     Dates: start: 20100818, end: 20100821
  5. RITUXIMAB [Suspect]
     Active Substance: RITUXIMAB
     Indication: PRODUCT USED FOR UNKNOWN INDICATION
     Dosage: DAY 1, 11
     Route: 042
     Dates: start: 20100818, end: 20100830
  6. VINCRISTINE [Concomitant]
     Active Substance: VINCRISTINE
     Dosage: D4, D11?FORM STRENGTH : 1 MG/ML/
     Route: 042
     Dates: start: 20100821, end: 20100830

REACTIONS (1)
  - Ileus [Unknown]

NARRATIVE: CASE EVENT DATE: 20100905
